FAERS Safety Report 6587720-8 (Version None)
Quarter: 2010Q1

REPORT INFORMATION
  Report Type: 
  Country: None (occurrence: None)
  Receive Date: 20100218
  Receipt Date: 20091218
  Transmission Date: 20100710
  Serious: No
  Sender: FDA-Public Use
  Company Number: A0835936A

PATIENT
  Sex: Female

DRUGS (4)
  1. COREG CR [Suspect]
     Indication: HYPERTENSION
     Dosage: 10MG PER DAY
     Route: 048
     Dates: start: 20091215
  2. MIRAPEX [Concomitant]
  3. NEURONTIN [Concomitant]
  4. PROTONIX [Concomitant]

REACTIONS (4)
  - ABDOMINAL PAIN UPPER [None]
  - FREQUENT BOWEL MOVEMENTS [None]
  - INSOMNIA [None]
  - TERMINAL INSOMNIA [None]
